FAERS Safety Report 6774183-2 (Version None)
Quarter: 2010Q2

REPORT INFORMATION
  Report Type: 
  Country: None (occurrence: None)
  Receive Date: 20100617
  Receipt Date: 20100610
  Transmission Date: 20101027
  Serious: Yes (Hospitalization)
  Sender: FDA-Public Use
  Company Number: GR-SHIRE-SPV1-2010-01099

PATIENT
  Age: 39 Year
  Sex: Male

DRUGS (2)
  1. XAGRID [Suspect]
     Indication: ESSENTIAL THROMBOCYTHAEMIA
  2. ANTICOAGULANT [Concomitant]

REACTIONS (1)
  - SUPERIOR SAGITTAL SINUS THROMBOSIS [None]
